FAERS Safety Report 9319708 (Version 1)
Quarter: 2013Q1

REPORT INFORMATION
  Report Type: Spontaneous
  Country: US (occurrence: None)
  Receive Date: 20121210
  Receipt Date: 20121210
  Transmission Date: 20140127
  Serious: Yes (Disabling, Other)
  Sender: FDA-Public Use
  Company Number: ACO_33178_2012

PATIENT
  Age: 62 Year
  Sex: Female
  Weight: 54.4 kg

DRUGS (2)
  1. AMPYRA (DALFAMPRIDINE) TABLET, 10 MG [Suspect]
     Indication: GAIT DISTURBANCE
     Route: 048
     Dates: start: 201211, end: 201211
  2. ALL OTHER THERAPEUTIC PRODUCTS [Concomitant]

REACTIONS (6)
  - Abasia [None]
  - Movement disorder [None]
  - Presyncope [None]
  - Activities of daily living impaired [None]
  - Dizziness [None]
  - Drug dose omission [None]
